FAERS Safety Report 5313900-5 (Version None)
Quarter: 2007Q2

REPORT INFORMATION
  Report Type: 
  Country: None (occurrence: None)
  Receive Date: 20070501
  Receipt Date: 20070423
  Transmission Date: 20071010
  Serious: Yes (Other)
  Sender: FDA-Public Use
  Company Number: FR-JNJFOC-20070200484

PATIENT
  Sex: Male

DRUGS (4)
  1. RISPERDAL [Suspect]
     Indication: SCHIZOPHRENIA
     Route: 048
  2. PARIET [Concomitant]
     Indication: GASTROOESOPHAGEAL REFLUX DISEASE
  3. ATHYMIL [Concomitant]
     Indication: ANXIETY
  4. MEDIATOR [Concomitant]
     Indication: OBESITY

REACTIONS (2)
  - BULIMIA NERVOSA [None]
  - WEIGHT INCREASED [None]
